FAERS Safety Report 15937627 (Version 2)
Quarter: 2019Q2

REPORT INFORMATION
  Report Type: Spontaneous
  Country: US (occurrence: US)
  Receive Date: 20190208
  Receipt Date: 20190418
  Transmission Date: 20190711
  Serious: Yes (Death, Life-Threatening, Other)
  Sender: FDA-Public Use
  Company Number: US-JNJFOC-20190205597

PATIENT
  Age: 67 Year
  Sex: Male

DRUGS (1)
  1. INVOKANA [Suspect]
     Active Substance: CANAGLIFLOZIN
     Indication: TYPE 2 DIABETES MELLITUS
     Route: 048
     Dates: start: 20160922

REACTIONS (5)
  - Diarrhoea [Unknown]
  - Renal colic [Unknown]
  - Diabetes mellitus [Unknown]
  - Sepsis [Fatal]
  - Candida infection [Unknown]

NARRATIVE: CASE EVENT DATE: 20161103
